FAERS Safety Report 13340536 (Version 1)
Quarter: 2017Q1

REPORT INFORMATION
  Report Type: Spontaneous
  Country: US (occurrence: US)
  Receive Date: 20170316
  Receipt Date: 20170316
  Transmission Date: 20170428
  Serious: Yes (Other)
  Sender: FDA-Public Use
  Company Number: US-ROCHE-1906698

PATIENT
  Sex: Female

DRUGS (2)
  1. ESBRIET [Suspect]
     Active Substance: PIRFENIDONE
     Dosage: 3 PILLS 3 TIMES PER DAY ;ONGOING: YES
     Route: 048
     Dates: start: 20170312
  2. ESBRIET [Suspect]
     Active Substance: PIRFENIDONE
     Indication: IDIOPATHIC PULMONARY FIBROSIS
     Dosage: UNKNOWN NUMBER OF PILLS ;ONGOING: NO
     Route: 048
     Dates: start: 20170227

REACTIONS (3)
  - Haematochezia [Recovered/Resolved]
  - Abdominal distension [Unknown]
  - Contusion [Unknown]

NARRATIVE: CASE EVENT DATE: 201703
